FAERS Safety Report 19210742 (Version 1)
Quarter: 2021Q2

REPORT INFORMATION
  Report Type: Spontaneous
  Country: US (occurrence: US)
  Receive Date: 20210503
  Receipt Date: 20210503
  Transmission Date: 20210717
  Serious: No
  Sender: FDA-Public Use
  Company Number: None

PATIENT
  Age: 57 Year
  Sex: Female
  Weight: 63.45 kg

DRUGS (9)
  1. VITAMIN D [Concomitant]
     Active Substance: VITAMIN D NOS
  2. ARMOUR THYROID [Suspect]
     Active Substance: THYROID, PORCINE
     Indication: HYPOTHYROIDISM
     Route: 048
     Dates: start: 20190601, end: 20210501
  3. PROGESTERONE. [Concomitant]
     Active Substance: PROGESTERONE
  4. ESTRADIAL PATCH [Concomitant]
  5. ZYRTEC [Concomitant]
     Active Substance: CETIRIZINE HYDROCHLORIDE
  6. QNASL [Concomitant]
     Active Substance: BECLOMETHASONE DIPROPIONATE
  7. MULTIVITAMIN [Concomitant]
     Active Substance: VITAMINS
  8. MAGNESIUM [Concomitant]
     Active Substance: MAGNESIUM
  9. SINGULAIR [Concomitant]
     Active Substance: MONTELUKAST SODIUM

REACTIONS (6)
  - Dizziness [None]
  - Loss of consciousness [None]
  - Fatigue [None]
  - Heart rate increased [None]
  - Blood pressure fluctuation [None]
  - Palpitations [None]

NARRATIVE: CASE EVENT DATE: 20210428
